FAERS Safety Report 9127560 (Version 1)
Quarter: 2013Q1

REPORT INFORMATION
  Report Type: Spontaneous
  Country: US (occurrence: US)
  Receive Date: 20130228
  Receipt Date: 20130228
  Transmission Date: 20140127
  Serious: No
  Sender: FDA-Public Use
  Company Number: US-GLAXOSMITHKLINE-A0983601A

PATIENT
  Age: 45 Year
  Sex: Male

DRUGS (5)
  1. LAMOTRIGINE [Suspect]
     Indication: CONVULSION
     Dosage: 400MG PER DAY
     Route: 048
     Dates: start: 20120606
  2. ZOCOR [Concomitant]
  3. IBU [Concomitant]
  4. PRILOSEC [Concomitant]
  5. AMBIEN [Concomitant]

REACTIONS (7)
  - Urethritis [Unknown]
  - Genital burning sensation [Unknown]
  - Pollakiuria [Unknown]
  - Urine flow decreased [Unknown]
  - Dysuria [Unknown]
  - Urinary incontinence [Unknown]
  - Reiter^s syndrome [Unknown]
